FAERS Safety Report 6332575-X (Version None)
Quarter: 2009Q3

REPORT INFORMATION
  Report Type: 
  Country: None (occurrence: None)
  Receive Date: 20090828
  Receipt Date: 20090824
  Transmission Date: 20100115
  Serious: Yes (Death)
  Sender: FDA-Public Use
  Company Number: US-JNJFOC-20090802899

PATIENT
  Sex: Female
  Weight: 61.24 kg

DRUGS (2)
  1. RISPERDAL CONSTA [Suspect]
     Indication: SCHIZOPHRENIA, PARANOID TYPE
     Route: 065
  2. COGENTIN [Concomitant]
     Indication: NERVOUS SYSTEM DISORDER
     Route: 065

REACTIONS (1)
  - SUDDEN CARDIAC DEATH [None]
